FAERS Safety Report 8891752 (Version 1)
Quarter: 2012Q4

REPORT INFORMATION
  Report Type: 
  Country: US (occurrence: US)
  Receive Date: 20121107
  Receipt Date: 20121107
  Transmission Date: 20130627
  Serious: No
  Sender: FDA-Public Use
  Company Number: US-AMGEN-USASP2011058081

PATIENT
  Sex: Female

DRUGS (13)
  1. ENBREL [Suspect]
     Indication: PRODUCT USED FOR UNKNOWN INDICATION
     Dosage: 50 mg, qwk
  2. XANAX [Concomitant]
     Dosage: 0.5 mg, UNK
  3. FLUTICASONE                        /00972202/ [Concomitant]
     Dosage: 50 mg, UNK
  4. VICODIN [Concomitant]
     Dosage: 500 mg, UNK
  5. NAPROXEN [Concomitant]
     Dosage: 250 mg, UNK
  6. LAMICTAL [Concomitant]
     Dosage: 100 mg, UNK
  7. LEVOTHYROXIN [Concomitant]
     Dosage: 100 mg, UNK
  8. TRAZODONE [Concomitant]
     Dosage: 150 mg, UNK
  9. ACETYLSALICYLIC ACID [Concomitant]
     Dosage: 81 mg, UNK
  10. CALCIUM PLUS D3 [Concomitant]
  11. HIZENTRA [Concomitant]
     Dosage: UNK
  12. VITAMIN D3 [Concomitant]
  13. ESTROVEN [Concomitant]

REACTIONS (1)
  - Drug ineffective [Unknown]
